FAERS Safety Report 12671555 (Version 1)
Quarter: 2016Q3

REPORT INFORMATION
  Report Type: Spontaneous
  Country: US (occurrence: US)
  Receive Date: 20160822
  Receipt Date: 20160822
  Transmission Date: 20161109
  Serious: No
  Sender: FDA-Public Use
  Company Number: US-LEO PHARMA-243597

PATIENT

DRUGS (1)
  1. PICATO [Suspect]
     Active Substance: INGENOL MEBUTATE
     Indication: SOLAR LENTIGO
     Route: 061
     Dates: start: 20160811, end: 20160813

REACTIONS (4)
  - Application site scab [Not Recovered/Not Resolved]
  - Application site haemorrhage [Not Recovered/Not Resolved]
  - Application site pruritus [Not Recovered/Not Resolved]
  - Application site erythema [Not Recovered/Not Resolved]
